FAERS Safety Report 16381499 (Version 8)
Quarter: 2020Q4

REPORT INFORMATION
  Report Type: Report from Study
  Country: None (occurrence: JP)
  Receive Date: 20190603
  Receipt Date: 20201022
  Transmission Date: 20210113
  Serious: Yes (Hospitalization)
  Sender: FDA-Public Use
  Company Number: JP-ABBVIE-17K-087-2118193-00

PATIENT
  Age: 66 Year
  Sex: Female
  Weight: 47 kg

DRUGS (18)
  1. TERIPARATIDE [Concomitant]
     Active Substance: TERIPARATIDE
     Indication: PRODUCT USED FOR UNKNOWN INDICATION
     Route: 058
     Dates: end: 20171207
  2. DENOSUMAB [Concomitant]
     Active Substance: DENOSUMAB
     Indication: PRODUCT USED FOR UNKNOWN INDICATION
     Route: 058
     Dates: start: 20180105, end: 20180105
  3. DUODOPA [Suspect]
     Active Substance: CARBIDOPA\LEVODOPA
     Indication: PARKINSON^S DISEASE
     Dosage: MD: 15 ML, CD: 2.3 ML/HR X 16 HR, ED: 1.0 ML/UNIT X 1
     Route: 050
     Dates: start: 20170620, end: 20170718
  4. DUODOPA [Suspect]
     Active Substance: CARBIDOPA\LEVODOPA
     Dosage: MD: 11 ML, CD: 2.1 ML/HR X 9 HR, ED: 0.5 ML/UNIT X 1
     Route: 050
     Dates: start: 20170621, end: 20170623
  5. DUODOPA [Suspect]
     Active Substance: CARBIDOPA\LEVODOPA
     Dosage: MD: 13.5 ML, CD: 2.3 ML/HR X 14 HRS, ED: 1 ML/UNIT X 2?DOSE DECREASED
     Route: 050
     Dates: start: 20171013
  6. YOKUKANSAN [Concomitant]
     Active Substance: HERBALS
     Indication: PRODUCT USED FOR UNKNOWN INDICATION
     Route: 048
  7. SOLIFENACIN SUCCINATE. [Concomitant]
     Active Substance: SOLIFENACIN SUCCINATE
     Route: 048
  8. L-DOPA/DCI [Concomitant]
     Indication: PARKINSON^S DISEASE
     Route: 048
  9. DUODOPA [Suspect]
     Active Substance: CARBIDOPA\LEVODOPA
     Dosage: MD: 15 ML, CD: 2.3 ML/HR X 14 HR, ED: 1.0 ML/UNIT X 2
     Route: 050
     Dates: start: 20170804, end: 20171012
  10. DONEPEZIL HYDROCHLORIDE. [Concomitant]
     Active Substance: DONEPEZIL HYDROCHLORIDE
     Indication: PRODUCT USED FOR UNKNOWN INDICATION
     Route: 048
     Dates: end: 20180322
  11. YOKUKANSAN [Concomitant]
     Active Substance: HERBALS
     Route: 048
  12. ISTRADEFYLLINE [Concomitant]
     Active Substance: ISTRADEFYLLINE
     Indication: PARKINSON^S DISEASE
     Route: 048
     Dates: end: 20170718
  13. SOLIFENACIN SUCCINATE. [Concomitant]
     Active Substance: SOLIFENACIN SUCCINATE
     Indication: PRODUCT USED FOR UNKNOWN INDICATION
     Route: 048
  14. ISTRADEFYLLINE [Concomitant]
     Active Substance: ISTRADEFYLLINE
     Route: 048
  15. ROTIGOTINE [Concomitant]
     Active Substance: ROTIGOTINE
     Indication: PARKINSON^S DISEASE
     Route: 062
     Dates: end: 20170718
  16. DONEPEZIL HYDROCHLORIDE. [Concomitant]
     Active Substance: DONEPEZIL HYDROCHLORIDE
     Route: 048
     Dates: start: 20180323
  17. ALFACALCIDOL [Concomitant]
     Active Substance: ALFACALCIDOL
     Indication: PRODUCT USED FOR UNKNOWN INDICATION
     Route: 048
  18. FESOTERODINE FUMARATE. [Concomitant]
     Active Substance: FESOTERODINE FUMARATE
     Indication: PRODUCT USED FOR UNKNOWN INDICATION
     Route: 048

REACTIONS (8)
  - Stoma site inflammation [Recovering/Resolving]
  - Excessive granulation tissue [Unknown]
  - Stoma site erythema [Recovering/Resolving]
  - Lumbar vertebral fracture [Recovering/Resolving]
  - Stoma site pain [Recovered/Resolved]
  - Fractured sacrum [Recovering/Resolving]
  - Stoma site infection [Recovering/Resolving]
  - Fall [Unknown]

NARRATIVE: CASE EVENT DATE: 20170710
